FAERS Safety Report 7888377-6 (Version None)
Quarter: 2011Q4

REPORT INFORMATION
  Report Type: 
  Country: None (occurrence: None)
  Receive Date: 20111103
  Receipt Date: 20111031
  Transmission Date: 20120403
  Serious: Yes (Hospitalization, Other)
  Sender: FDA-Public Use
  Company Number: JP-PFIZER INC-2011266565

PATIENT
  Age: 63 Year
  Sex: Male

DRUGS (8)
  1. LYRICA [Suspect]
     Dosage: UNK
     Route: 048
     Dates: start: 20101003
  2. TRIAZOLAM [Concomitant]
     Dosage: UNK
     Route: 048
  3. ETODOLAC [Concomitant]
     Dosage: UNK
     Route: 048
  4. ADRENAL CORTICAL EXTRACT/HEPARINOID/SALICYLIC ACID [Concomitant]
     Dosage: UNK
     Route: 062
  5. METHYCOBAL [Concomitant]
     Dosage: UNK
  6. REBAMIPIDE [Concomitant]
     Dosage: UNK
     Route: 048
  7. SELTOUCH [Concomitant]
     Dosage: UNK
     Route: 062
  8. MYONAL [Concomitant]
     Dosage: UNK

REACTIONS (1)
  - PNEUMONIA [None]
